FAERS Safety Report 22121245 (Version 12)
Quarter: 2025Q1

REPORT INFORMATION
  Report Type: Spontaneous
  Country: US (occurrence: US)
  Receive Date: 20230321
  Receipt Date: 20250218
  Transmission Date: 20250408
  Serious: Yes (Other)
  Sender: PFIZER
  Company Number: US-PFIZER INC-PV202300052235

PATIENT
  Age: 75 Year
  Sex: Female

DRUGS (2)
  1. IBRANCE [Suspect]
     Active Substance: PALBOCICLIB
     Indication: Breast cancer female
  2. IBRANCE [Suspect]
     Active Substance: PALBOCICLIB
     Route: 048

REACTIONS (21)
  - Bone marrow disorder [Unknown]
  - Diverticulitis [Unknown]
  - Cataract [Unknown]
  - White blood cell count decreased [Unknown]
  - Nutritional condition abnormal [Unknown]
  - Oral herpes [Unknown]
  - Aphthous ulcer [Unknown]
  - Asthenia [Not Recovered/Not Resolved]
  - COVID-19 [Not Recovered/Not Resolved]
  - Visual impairment [Unknown]
  - Mouth ulceration [Unknown]
  - Arthropathy [Unknown]
  - Decreased appetite [Unknown]
  - Immune system disorder [Recovered/Resolved]
  - Aphonia [Unknown]
  - Fatigue [Unknown]
  - Nasopharyngitis [Unknown]
  - Illness [Unknown]
  - Neoplasm progression [Unknown]
  - Chest pain [Unknown]
  - Rash erythematous [Unknown]

NARRATIVE: CASE EVENT DATE: 20230101
